FAERS Safety Report 16551064 (Version 2)
Quarter: 2019Q3

REPORT INFORMATION
  Report Type: Spontaneous
  Country: DE (occurrence: DE)
  Receive Date: 20190710
  Receipt Date: 20190718
  Transmission Date: 20191004
  Serious: Yes (Hospitalization)
  Sender: FDA-Public Use
  Company Number: DE-GLAXOSMITHKLINE-DE2019123430

PATIENT
  Age: 69 Year
  Sex: Male
  Weight: 81 kg

DRUGS (2)
  1. IBUPROFEN. [Suspect]
     Active Substance: IBUPROFEN
     Indication: PRODUCT USED FOR UNKNOWN INDICATION
     Dosage: 400 MG, 5 TABLETS OVER 4 DAYS; LAST DOSE 14.11.2017, TABLETS
     Route: 048
     Dates: end: 20171114
  2. DICLOFENAC [Suspect]
     Active Substance: DICLOFENAC
     Indication: PRODUCT USED FOR UNKNOWN INDICATION
     Dosage: 50 MG, B. B; LAST DOSE 13.11.2017, TABLETS
     Route: 048
     Dates: end: 20171113

REACTIONS (3)
  - Diarrhoea [Unknown]
  - Anal haemorrhage [Unknown]
  - Abdominal pain [Unknown]
